FAERS Safety Report 7930061-4 (Version None)
Quarter: 2011Q4

REPORT INFORMATION
  Report Type: 
  Country: None (occurrence: None)
  Receive Date: 20111121
  Receipt Date: 20111116
  Transmission Date: 20120403
  Serious: Yes (Life-Threatening, Hospitalization)
  Sender: FDA-Public Use
  Company Number: US-SANOFI-AVENTIS-2011SA075495

PATIENT
  Age: 67 Year
  Sex: Female

DRUGS (3)
  1. FLUOROURACIL [Concomitant]
     Route: 065
  2. LEUCOVORIN CALCIUM [Concomitant]
     Route: 065
  3. OXALIPLATIN [Suspect]
     Route: 065

REACTIONS (2)
  - HYPOXIA [None]
  - TYPE IV HYPERSENSITIVITY REACTION [None]
